FAERS Safety Report 8124576-6 (Version None)
Quarter: 2012Q1

REPORT INFORMATION
  Report Type: 
  Country: None (occurrence: None)
  Receive Date: 20120209
  Receipt Date: 20120126
  Transmission Date: 20120608
  Serious: Yes (Other)
  Sender: FDA-Public Use
  Company Number: US-BAYER-2012-010325

PATIENT
  Age: 76 Year
  Sex: Male
  Weight: 95 kg

DRUGS (24)
  1. VANCOMYCIN [Concomitant]
  2. MANNITOL [Concomitant]
     Dosage: 25 G, UNK
  3. DOPAMINE HCL [Concomitant]
  4. TRASYLOL [Suspect]
     Dosage: 200 ML LOADING DOSE
     Dates: start: 20070510, end: 20070510
  5. VECURONIUM BROMIDE [Concomitant]
     Dosage: 15 MG, UNK
  6. TRASYLOL [Suspect]
     Indication: CORONARY ARTERY BYPASS
     Dosage: 200 ML, PUMP PRIME
     Dates: start: 20070510, end: 20070510
  7. AMIODARONE HCL [Concomitant]
  8. PLATELETS [Concomitant]
     Dosage: 6 U, UNK
  9. CITRUCEL [Concomitant]
     Dosage: UNK UNK, QOD
  10. VITAMIN E [Concomitant]
  11. SEVOFLURANE [Concomitant]
  12. INSULIN [Concomitant]
  13. TRASYLOL [Suspect]
     Dosage: 50 CC/HR INFUSION
     Dates: start: 20070510, end: 20070510
  14. TRIAMTERENE [Concomitant]
     Dosage: 25 MG, QD
  15. PROTAMINE SULFATE [Concomitant]
  16. EPHEDRINE [Concomitant]
  17. COUMADIN [Concomitant]
  18. ACETYLSALICYLIC ACID SRT [Concomitant]
     Dosage: 325 MG, UNK
  19. MULTI-VITAMIN [Concomitant]
  20. LIDOCAINE [Concomitant]
     Dosage: 100 MG, UNK
  21. FRESH FROZEN PLASMA [Concomitant]
     Dosage: 2 U, UNK
  22. MIDAZOLAM [Concomitant]
     Dosage: 15 MG, UNK
  23. RED BLOOD CELLS [Concomitant]
     Dosage: 2 U, UNK
  24. FENTANYL CITRATE [Concomitant]
     Dosage: 2000 MG, UNK

REACTIONS (1)
  - ATRIAL FIBRILLATION [None]
